FAERS Safety Report 4667137-3 (Version None)
Quarter: 2005Q2

REPORT INFORMATION
  Report Type: 
  Country: None (occurrence: None)
  Receive Date: 20050520
  Receipt Date: 20040409
  Transmission Date: 20051028
  Serious: Yes (Other)
  Sender: FDA-Public Use
  Company Number: PHEH2004US04073

PATIENT
  Age: 65 Year
  Sex: Female

DRUGS (4)
  1. ARIMIDEX [Concomitant]
     Indication: BREAST CANCER
     Dosage: 1 MG, QD
  2. LIPITOR [Concomitant]
     Dosage: UNK, QD
  3. DIOVAN [Concomitant]
     Dosage: UNK, QD
  4. ZOMETA [Suspect]
     Indication: BREAST CANCER STAGE IV
     Dosage: 4 MG, UNK
     Dates: start: 20020408, end: 20030912

REACTIONS (3)
  - JAW DISORDER [None]
  - OSTEONECROSIS [None]
  - TOOTH EXTRACTION [None]
